FAERS Safety Report 4447282-8 (Version None)
Quarter: 2004Q3

REPORT INFORMATION
  Report Type: 
  Country: None (occurrence: None)
  Receive Date: 20040813
  Receipt Date: 20040712
  Transmission Date: 20050211
  Serious: No
  Sender: FDA-Public Use
  Company Number: S04-USA-04070-01

PATIENT
  Age: 70 Year
  Sex: Female

DRUGS (20)
  1. NAMENDA [Suspect]
     Indication: DEMENTIA ALZHEIMER'S TYPE
     Dosage: 10 MG QD PO
     Route: 048
     Dates: start: 20040101, end: 20040101
  2. NAMENDA [Suspect]
     Indication: DEMENTIA ALZHEIMER'S TYPE
     Dosage: 15 MG QD PO
     Route: 048
     Dates: start: 20040101
  3. NAMENDA [Suspect]
     Indication: DEMENTIA ALZHEIMER'S TYPE
     Dosage: 5 MG QD PO
     Route: 048
     Dates: start: 20040601, end: 20040101
  4. ARICEPT [Concomitant]
  5. ASPIRIN [Concomitant]
  6. TYLENOL [Concomitant]
  7. ABILIFY [Concomitant]
  8. WELLBUTRIN [Concomitant]
  9. TOPROL-XL [Concomitant]
  10. SYNTHROID [Concomitant]
  11. IMITREX [Concomitant]
  12. RANITIDINE [Concomitant]
  13. ADALAT [Concomitant]
  14. LISINOPRIL [Concomitant]
  15. MIRAPEX [Concomitant]
  16. SINEMET [Concomitant]
  17. DUCOSATE [Concomitant]
  18. GABITRIL [Concomitant]
  19. VICODIN [Concomitant]
  20. CALCIUM [Concomitant]

REACTIONS (1)
  - HEADACHE [None]
